FAERS Safety Report 4336904-8 (Version None)
Quarter: 2004Q2

REPORT INFORMATION
  Report Type: 
  Country: None (occurrence: None)
  Receive Date: 20040412
  Receipt Date: 20040407
  Transmission Date: 20050107
  Serious: Yes (Other)
  Sender: FDA-Public Use
  Company Number: GB-MERCK-0404GBR00062

PATIENT
  Age: 51 Year
  Sex: Female
  Weight: 115 kg

DRUGS (7)
  1. BENDROFLUMETHIAZIDE [Concomitant]
     Indication: HYPERTENSION
     Route: 048
  2. DOXAZOSIN MESYLATE [Concomitant]
     Indication: HYPERTENSION
     Route: 048
  3. ENALAPRIL MALEATE [Concomitant]
     Indication: HYPERTENSION
     Route: 048
  4. ESTROGENS, CONJUGATED [Concomitant]
     Route: 048
  5. LEVOTHYROXINE SODIUM [Concomitant]
     Route: 048
  6. SINGULAIR [Suspect]
     Indication: ASTHMA
     Route: 048
     Dates: start: 20030801, end: 20040201
  7. OMEPRAZOLE [Concomitant]
     Route: 048

REACTIONS (4)
  - ARTHRITIS [None]
  - MYALGIA [None]
  - RED BLOOD CELL SEDIMENTATION RATE INCREASED [None]
  - SYSTEMIC LUPUS ERYTHEMATOSUS [None]
